FAERS Safety Report 10606099 (Version 1)
Quarter: 2014Q4

REPORT INFORMATION
  Report Type: Report from Study
  Country: CN (occurrence: CN)
  Receive Date: 20141125
  Receipt Date: 20141125
  Transmission Date: 20150529
  Serious: Yes (Hospitalization, Other)
  Sender: FDA-Public Use
  Company Number: CN-ACTELION-A-CH2014-108316

PATIENT
  Age: 75 Year
  Sex: Female

DRUGS (6)
  1. WARFARIN [Concomitant]
     Active Substance: WARFARIN
  2. VENTAVIS [Suspect]
     Active Substance: ILOPROST
     Indication: PULMONARY ARTERIAL HYPERTENSION
     Dosage: FREQUENCY OF 3 TO 5 TIMES A DAY
     Route: 055
  3. VENTAVIS [Suspect]
     Active Substance: ILOPROST
     Dosage: FREQUENCY OF 6 TO 9 TIMES A DAY
     Route: 055
  4. VENTAVIS [Suspect]
     Active Substance: ILOPROST
     Dosage: FREQUENCY OF 1 TO 2 TIMES A DAY
     Route: 055
  5. VENTAVIS [Suspect]
     Active Substance: ILOPROST
     Dosage: FREQUENCY OF 3 TO 5 TIMES A DAY
     Route: 055
  6. DIGITALIS [Concomitant]
     Active Substance: DIGITALIS

REACTIONS (5)
  - Cough [Recovering/Resolving]
  - Pulmonary arterial hypertension [Unknown]
  - Cerebral infarction [Unknown]
  - Disease progression [Unknown]
  - Ear discomfort [Unknown]

NARRATIVE: CASE EVENT DATE: 201004
